FAERS Safety Report 5792100-9 (Version None)
Quarter: 2008Q2

REPORT INFORMATION
  Report Type: 
  Country: None (occurrence: None)
  Receive Date: 20080626
  Receipt Date: 20080407
  Transmission Date: 20081010
  Serious: No
  Sender: FDA-Public Use
  Company Number: US-ASTRAZENECA-2008UW05657

PATIENT
  Age: 2 Year
  Sex: Male
  Weight: 15.5 kg

DRUGS (2)
  1. PULMICORT RESPULES [Suspect]
     Indication: BRONCHIAL HYPERREACTIVITY
     Route: 055
  2. PULMICORT RESPULES [Suspect]
     Route: 055

REACTIONS (3)
  - AGITATION [None]
  - EUPHORIC MOOD [None]
  - PSYCHOMOTOR HYPERACTIVITY [None]
